FAERS Safety Report 12716588 (Version 5)
Quarter: 2016Q4

REPORT INFORMATION
  Report Type: Report from Study
  Country: None (occurrence: TR)
  Receive Date: 20160906
  Receipt Date: 20161018
  Transmission Date: 20170207
  Serious: Yes (Death, Hospitalization, Other)
  Sender: FDA-Public Use
  Company Number: TR-ABBVIE-16K-161-1716702-00

PATIENT
  Age: 77 Year
  Sex: Female
  Weight: 80 kg

DRUGS (1)
  1. DUODOPA [Suspect]
     Active Substance: CARBIDOPA\LEVODOPA
     Indication: PARKINSON^S DISEASE
     Dosage: MD: 10.5 ML; CD: 2.0 ML
     Route: 050
     Dates: start: 20131203

REACTIONS (8)
  - Pneumonia [Recovered/Resolved]
  - Implant site dermatitis [Recovering/Resolving]
  - Thermal burn [Not Recovered/Not Resolved]
  - Fall [Recovered/Resolved]
  - C-reactive protein increased [Recovered/Resolved]
  - Gastric pH decreased [Not Recovered/Not Resolved]
  - General physical health deterioration [Fatal]
  - Stoma site extravasation [Recovered/Resolved]

NARRATIVE: CASE EVENT DATE: 20160825
